FAERS Safety Report 6039053-6 (Version None)
Quarter: 2009Q1

REPORT INFORMATION
  Report Type: 
  Country: None (occurrence: None)
  Receive Date: 20090115
  Receipt Date: 20090107
  Transmission Date: 20090719
  Serious: Yes (Other)
  Sender: FDA-Public Use
  Company Number: DE-ELI_LILLY_AND_COMPANY-DE200901000969

PATIENT
  Age: 32 Year
  Sex: Male

DRUGS (1)
  1. CIALIS [Suspect]
     Dosage: 20 MG, UNKNOWN
     Route: 048
     Dates: start: 20081229

REACTIONS (3)
  - HEADACHE [None]
  - TACHYCARDIA [None]
  - VISUAL ACUITY REDUCED [None]
